FAERS Safety Report 5526880-4 (Version None)
Quarter: 2007Q4

REPORT INFORMATION
  Report Type: 
  Country: None (occurrence: None)
  Receive Date: 20071127
  Receipt Date: 20071120
  Transmission Date: 20080405
  Serious: Yes (Other)
  Sender: FDA-Public Use
  Company Number: PHBS2007JP19535

PATIENT
  Age: 5 Year
  Sex: Male

DRUGS (4)
  1. ZADITEN [Suspect]
     Indication: HENOCH-SCHONLEIN PURPURA
     Dosage: 1.2 G/DAY
     Route: 048
  2. ADONA [Concomitant]
  3. TRANSAMIN [Concomitant]
  4. HICEE [Concomitant]

REACTIONS (2)
  - FEAR [None]
  - POLLAKIURIA [None]
